FAERS Safety Report 7650311-1 (Version None)
Quarter: 2011Q3

REPORT INFORMATION
  Report Type: 
  Country: None (occurrence: None)
  Receive Date: 20110719
  Receipt Date: 20101207
  Transmission Date: 20111222
  Serious: Yes (Other)
  Sender: FDA-Public Use
  Company Number: 163-50794-10121021

PATIENT
  Age: 72 Year
  Sex: Male

DRUGS (3)
  1. REVLIMID [Suspect]
     Indication: MYELODYSPLASTIC SYNDROME
     Dosage: 5 DAYS, DAILY X 14 DAYS
     Dates: start: 20070901
  2. VIDAZA [Suspect]
     Indication: MYELODYSPLASTIC SYNDROME
     Dosage: 50 MG/M2, DAYS 1-5; 8-12 ; 75 MG/M2, X 6 DAYS
     Dates: start: 20070901
  3. VIDAZA [Suspect]
     Indication: MYELODYSPLASTIC SYNDROME
     Dosage: 50 MG/M2, DAYS 1-5; 8-12 ; 75 MG/M2, X 6 DAYS
     Dates: start: 20080401

REACTIONS (2)
  - ACUTE MYELOID LEUKAEMIA [None]
  - MYELODYSPLASTIC SYNDROME TRANSFORMATION [None]
